FAERS Safety Report 7953158-1 (Version None)
Quarter: 2011Q4

REPORT INFORMATION
  Report Type: 
  Country: None (occurrence: None)
  Receive Date: 20111201
  Receipt Date: 20111118
  Transmission Date: 20120403
  Serious: Yes (Other)
  Sender: FDA-Public Use
  Company Number: CA-ROCHE-1010592

PATIENT
  Sex: Female

DRUGS (2)
  1. XOLAIR [Suspect]
     Indication: ASTHMA
     Dosage: FREQUENCY: BIW
     Route: 058
     Dates: start: 20110721, end: 20111003
  2. VENTOLIN [Concomitant]

REACTIONS (8)
  - DIZZINESS [None]
  - HEADACHE [None]
  - SINUS CONGESTION [None]
  - BODY TEMPERATURE INCREASED [None]
  - PNEUMONIA [None]
  - SINUS HEADACHE [None]
  - NAUSEA [None]
  - NASOPHARYNGITIS [None]
